FAERS Safety Report 8567718-0 (Version None)
Quarter: 2012Q3

REPORT INFORMATION
  Report Type: 
  Country: None (occurrence: None)
  Receive Date: 20120803
  Receipt Date: 20120727
  Transmission Date: 20120928
  Serious: Yes (Hospitalization)
  Sender: FDA-Public Use
  Company Number: JP-009507513-1207JPN012624

PATIENT

DRUGS (5)
  1. URSO 250 [Concomitant]
     Route: 048
  2. REBETOL [Suspect]
     Indication: HEPATITIS C
     Dosage: 200 AND 400 IN EVENING IN MORNING
     Route: 048
     Dates: start: 20120614
  3. PEG-INTRON [Suspect]
     Indication: HEPATITIS C
     Dosage: 80MCG/WEEK
     Route: 058
     Dates: start: 20120614
  4. LOXONIN [Concomitant]
     Route: 048
  5. TELAVIC [Suspect]
     Indication: HEPATITIS C
     Route: 048
     Dates: start: 20120614

REACTIONS (2)
  - BLOOD URIC ACID INCREASED [None]
  - RASH [None]
